APPROVED DRUG PRODUCT: DIFLORASONE DIACETATE
Active Ingredient: DIFLORASONE DIACETATE
Strength: 0.05%
Dosage Form/Route: CREAM;TOPICAL
Application: A076263 | Product #001
Applicant: ANI PHARMACEUTICALS INC
Approved: Dec 20, 2002 | RLD: No | RS: No | Type: DISCN